FAERS Safety Report 15288236 (Version 1)
Quarter: 2018Q3

REPORT INFORMATION
  Report Type: Spontaneous
  Country: US (occurrence: US)
  Receive Date: 20180817
  Receipt Date: 20180817
  Transmission Date: 20181010
  Serious: Yes (Hospitalization, Other)
  Sender: FDA-Public Use
  Company Number: US-AUROBINDO-AUR-APL-2018-040771

PATIENT
  Age: 72 Year
  Sex: Male

DRUGS (5)
  1. PREDNISONE. [Suspect]
     Active Substance: PREDNISONE
     Indication: IMMUNOSUPPRESSION
     Dosage: 5 MILLIGRAM
     Route: 065
  2. TACROLIMUS. [Suspect]
     Active Substance: TACROLIMUS
     Indication: IMMUNOSUPPRESSION
     Dosage: IN THE MORNING
     Route: 065
  3. TACROLIMUS. [Suspect]
     Active Substance: TACROLIMUS
     Dosage: IN THE EVENING
     Route: 065
  4. VALGANCICLOVIR. [Concomitant]
     Active Substance: VALGANCICLOVIR
     Indication: ANTIVIRAL PROPHYLAXIS
     Dosage: 450 MILLIGRAM
     Route: 065
  5. LEFLUNOMIDE. [Concomitant]
     Active Substance: LEFLUNOMIDE
     Indication: HUMAN POLYOMAVIRUS INFECTION
     Dosage: 10 MILLIGRAM
     Route: 065

REACTIONS (11)
  - Pulmonary mass [Recovered/Resolved]
  - Inflammation [Recovering/Resolving]
  - Nephropathy [Recovering/Resolving]
  - Fungal infection [Recovered/Resolved]
  - Drug level increased [Recovering/Resolving]
  - Human polyomavirus infection [Recovering/Resolving]
  - Brain abscess [Recovered/Resolved]
  - Pulmonary fibrosis [Recovering/Resolving]
  - Disease recurrence [Recovering/Resolving]
  - Disease progression [Recovering/Resolving]
  - Haematuria [Recovering/Resolving]

NARRATIVE: CASE EVENT DATE: 2015
